FAERS Safety Report 16789905 (Version 1)
Quarter: 2019Q3

REPORT INFORMATION
  Report Type: Spontaneous
  Country: US (occurrence: US)
  Receive Date: 20190910
  Receipt Date: 20190910
  Transmission Date: 20191005
  Serious: Yes (Hospitalization, Other)
  Sender: FDA-Public Use
  Company Number: US-APOTEX-2019AP021544

PATIENT
  Age: 80 Year
  Sex: Female

DRUGS (1)
  1. AMIODARONE [Suspect]
     Active Substance: AMIODARONE
     Indication: ATRIAL FIBRILLATION
     Dosage: 200 MG, UNK
     Route: 065

REACTIONS (6)
  - Hypoxia [Unknown]
  - Dyspnoea [Recovering/Resolving]
  - Toxicity to various agents [Unknown]
  - Cough [Unknown]
  - Pulmonary toxicity [Unknown]
  - Drug-induced liver injury [Unknown]
